FAERS Safety Report 9548585 (Version 1)
Quarter: 2013Q2

REPORT INFORMATION
  Report Type: Spontaneous
  Country: US (occurrence: None)
  Receive Date: 20130627
  Receipt Date: 20130627
  Transmission Date: 20140414
  Serious: No
  Sender: FDA-Public Use
  Company Number: 1000044484

PATIENT
  Age: 59 Year
  Sex: Female

DRUGS (2)
  1. LINZESS (LINACLOTIDE) (CAPSULES) [Suspect]
     Indication: IRRITABLE BOWEL SYNDROME
     Dosage: 290 MCG, 1 IN 1 D
     Route: 048
     Dates: start: 20130413, end: 20130414
  2. PRILOSEC [Concomitant]

REACTIONS (3)
  - Chest discomfort [None]
  - Dizziness [None]
  - Anxiety [None]
